FAERS Safety Report 7940001-X (Version None)
Quarter: 2011Q4

REPORT INFORMATION
  Report Type: 
  Country: None (occurrence: None)
  Receive Date: 20111125
  Receipt Date: 20111121
  Transmission Date: 20120403
  Serious: No
  Sender: FDA-Public Use
  Company Number: US-PFIZER INC-2011267100

PATIENT
  Sex: Male
  Weight: 74.83 kg

DRUGS (11)
  1. ARTHROTEC [Concomitant]
     Dosage: UNK, BID
  2. FLECTOR [Suspect]
     Indication: BACK PAIN
     Dosage: 1 DF, 12H ON AND 12H OFF
     Dates: start: 20111024
  3. IBUPROFEN (ADVIL) [Concomitant]
  4. PERCOCET [Concomitant]
     Dosage: 5/325 MG QID PRN
  5. KLONOPIN [Concomitant]
     Dosage: 1-2 MG QHS
  6. NAPROXEN (ALEVE) [Concomitant]
  7. LIPITOR [Concomitant]
     Indication: BLOOD CHOLESTEROL INCREASED
     Dosage: 20 MG, DAILY
  8. FLECTOR [Suspect]
     Indication: RADICULOPATHY
  9. EXCEDRIN (MIGRAINE) [Suspect]
  10. NEURONTIN [Concomitant]
     Dosage: 600 MG, 3X/DAY
  11. MULTI-VITAMINS [Concomitant]

REACTIONS (1)
  - DRUG INEFFECTIVE [None]
